FAERS Safety Report 10085595 (Version 2)
Quarter: 2014Q2

REPORT INFORMATION
  Report Type: Spontaneous
  Country: US (occurrence: US)
  Receive Date: 20140418
  Receipt Date: 20140602
  Transmission Date: 20141212
  Serious: No
  Sender: FDA-Public Use
  Company Number: US-B.I. PHARMACEUTICALS,INC./RIDGEFIELD-2014-BI-15819BP

PATIENT
  Age: 80 Year
  Sex: Male
  Weight: 97 kg

DRUGS (9)
  1. COMBIVENT [Suspect]
     Indication: CHRONIC OBSTRUCTIVE PULMONARY DISEASE
     Dosage: STRENGTH: 20 MCG / 100 MCG; DAILY DOSE: 40 MCG / 200 MCG
     Route: 055
     Dates: start: 20140404
  2. PREDISONE [Concomitant]
     Dosage: 20 MG
     Route: 048
  3. VALSARTAN HCT [Concomitant]
     Indication: HYPERTENSION
     Dosage: STRENGTH: 160 MG / 12.5 MG; DAILY DOSE: 160 MG / 12.5 MG
     Route: 048
  4. ATORVASTATIN [Concomitant]
     Indication: BLOOD CHOLESTEROL INCREASED
     Dosage: 20 MG
     Route: 048
  5. PLAVIX [Concomitant]
     Dosage: 75 MG
     Route: 048
  6. ASPIRIN [Concomitant]
     Dosage: 81 MG
     Route: 048
  7. METOPROLOL [Concomitant]
     Indication: HYPERTENSION
     Dosage: 50 MG
     Route: 048
  8. ADVAIR [Concomitant]
     Indication: CHRONIC OBSTRUCTIVE PULMONARY DISEASE
     Dosage: STRENGTH AND DAILY DOSE: 1 INHALATION
     Route: 055
  9. NORVASC [Concomitant]
     Indication: HYPERTENSION
     Dosage: 5 MG
     Route: 048

REACTIONS (4)
  - Chest pain [Recovered/Resolved]
  - Eye pain [Recovered/Resolved]
  - Nervousness [Recovered/Resolved]
  - Product quality issue [Not Recovered/Not Resolved]
